FAERS Safety Report 6357280-5 (Version None)
Quarter: 2009Q3

REPORT INFORMATION
  Report Type: 
  Country: None (occurrence: None)
  Receive Date: 20090916
  Receipt Date: 20090904
  Transmission Date: 20100115
  Serious: Yes (Other)
  Sender: FDA-Public Use
  Company Number: PHEH2009US10451

PATIENT
  Age: 85 Year
  Sex: Female

DRUGS (1)
  1. RECLAST [Suspect]
     Indication: OSTEOPOROSIS POSTMENOPAUSAL
     Dosage: 5 MG, UNK
     Route: 042

REACTIONS (5)
  - ABASIA [None]
  - BONE PAIN [None]
  - CREATININE RENAL CLEARANCE ABNORMAL [None]
  - HALLUCINATION [None]
  - INCOHERENT [None]
